FAERS Safety Report 9444990 (Version 1)
Quarter: 2013Q3

REPORT INFORMATION
  Report Type: Spontaneous
  Country: FR (occurrence: FR)
  Receive Date: 20130807
  Receipt Date: 20130807
  Transmission Date: 20140515
  Serious: Yes (Other)
  Sender: FDA-Public Use
  Company Number: FR-B.I. PHARMACEUTICALS,INC./RIDGEFIELD-2013-FF-01709FF

PATIENT
  Age: 93 Year
  Sex: Male
  Weight: 58 kg

DRUGS (6)
  1. PRADAXA [Suspect]
     Dosage: 220 MG
     Route: 048
     Dates: start: 201306
  2. FUROSEMIDE EG [Concomitant]
     Dosage: 20MGX1 EVERY OTHER DAY
     Route: 048
  3. AMAREL [Concomitant]
     Dosage: 2 MG
     Route: 048
  4. DAFALGAN [Concomitant]
     Dosage: 4 G
     Route: 048
  5. ZANIDIP [Concomitant]
     Dosage: 20 MG
     Route: 048
  6. COVERSYL [Concomitant]
     Dosage: 5 MG
     Route: 048

REACTIONS (2)
  - Rectal haemorrhage [Not Recovered/Not Resolved]
  - Rectal cancer [Not Recovered/Not Resolved]
